FAERS Safety Report 7954441-6 (Version None)
Quarter: 2011Q4

REPORT INFORMATION
  Report Type: 
  Country: None (occurrence: None)
  Receive Date: 20111202
  Receipt Date: 20111123
  Transmission Date: 20120403
  Serious: Yes (Hospitalization)
  Sender: FDA-Public Use
  Company Number: FR-GLAXOSMITHKLINE-B0764567A

PATIENT
  Sex: Female

DRUGS (7)
  1. URBANYL [Concomitant]
     Dates: start: 20110610, end: 20110619
  2. ZOVIRAX [Suspect]
     Indication: ENCEPHALITIS HERPES
     Dosage: 600MG FOUR TIMES PER DAY
     Route: 042
     Dates: start: 20110610, end: 20110613
  3. REBIF [Concomitant]
     Indication: MULTIPLE SCLEROSIS
  4. KEPPRA [Concomitant]
     Dates: start: 20110610
  5. ALPRAZOLAM [Concomitant]
     Indication: INSOMNIA
     Dosage: .25MG PER DAY
  6. IMOVANE [Concomitant]
     Indication: INSOMNIA
     Dosage: 7.5MG AS REQUIRED
  7. SOLU-MEDROL [Concomitant]
     Indication: MULTIPLE SCLEROSIS

REACTIONS (2)
  - RENAL FAILURE ACUTE [None]
  - PANCYTOPENIA [None]
